FAERS Safety Report 5091684-6 (Version None)
Quarter: 2006Q3

REPORT INFORMATION
  Report Type: 
  Country: None (occurrence: None)
  Receive Date: 20060824
  Receipt Date: 20060809
  Transmission Date: 20061208
  Serious: Yes (Other)
  Sender: FDA-Public Use
  Company Number: 2006100234

PATIENT

DRUGS (4)
  1. CABERGOLINE [Suspect]
     Dosage: ORAL
  2. NEO-DOPASTON (CARBIDOPA, LEVODOPA) [Concomitant]
  3. ARTANE [Concomitant]
  4. SYMMETREL [Concomitant]

REACTIONS (1)
  - PLATELET COUNT DECREASED [None]
